FAERS Safety Report 6253974-0 (Version None)
Quarter: 2009Q3

REPORT INFORMATION
  Report Type: 
  Country: None (occurrence: None)
  Receive Date: 20090702
  Receipt Date: 20090624
  Transmission Date: 20100115
  Serious: No
  Sender: FDA-Public Use
  Company Number: JP-EISAI INC.-E2020-04813-SPO-JP

PATIENT
  Age: 77 Year
  Sex: Male

DRUGS (5)
  1. ARICEPT [Suspect]
     Indication: DEMENTIA ALZHEIMER'S TYPE
     Route: 048
     Dates: end: 20090623
  2. CYANOCOBALAMIN [Concomitant]
     Route: 048
  3. SELBEX [Concomitant]
     Route: 048
  4. NORVASC [Concomitant]
     Route: 048
     Dates: start: 20090623
  5. PARIET [Concomitant]
     Route: 048
     Dates: start: 20090623

REACTIONS (1)
  - RENAL IMPAIRMENT [None]
